FAERS Safety Report 4628660-0 (Version None)
Quarter: 2005Q2

REPORT INFORMATION
  Report Type: 
  Country: None (occurrence: None)
  Receive Date: 20050404
  Receipt Date: 20050321
  Transmission Date: 20051028
  Serious: Yes (Death)
  Sender: FDA-Public Use
  Company Number: B0375816A

PATIENT
  Sex: 0

DRUGS (4)
  1. ALKERAN [Suspect]
  2. ALEMTUZUMAB (ALEMTUZUMAB) [Suspect]
  3. FLUDARABINE PHOSPHATE [Suspect]
  4. CYCLOSPORINE [Concomitant]

REACTIONS (2)
  - BONE MARROW TRANSPLANT REJECTION [None]
  - PSEUDOMONAS INFECTION [None]
